FAERS Safety Report 8537709-4 (Version None)
Quarter: 2012Q3

REPORT INFORMATION
  Report Type: 
  Country: None (occurrence: None)
  Receive Date: 20120725
  Receipt Date: 20120725
  Transmission Date: 20120928
  Serious: Yes (Other)
  Sender: FDA-Public Use
  Company Number: PHHY2012GR063777

PATIENT
  Age: 11 Year
  Sex: Male

DRUGS (2)
  1. RITALIN [Suspect]
     Dosage: 5 MG, UNK
  2. RITALIN [Suspect]
     Dosage: UNK UKN, UNK

REACTIONS (4)
  - BLOOD SODIUM DECREASED [None]
  - PERIPHERAL COLDNESS [None]
  - HYPERHIDROSIS [None]
  - DYSKINESIA [None]
